FAERS Safety Report 20212499 (Version 1)
Quarter: 2021Q4

REPORT INFORMATION
  Report Type: Spontaneous
  Country: IN (occurrence: IN)
  Receive Date: 20211221
  Receipt Date: 20211221
  Transmission Date: 20220303
  Serious: Yes (Death, Other)
  Sender: FDA-Public Use
  Company Number: IN-PFIZER INC-2020055837

PATIENT
  Age: 63 Year
  Sex: Male
  Weight: 52.8 kg

DRUGS (1)
  1. INLYTA [Suspect]
     Active Substance: AXITINIB
     Indication: Metastatic renal cell carcinoma
     Dosage: 5 MG, 2X/DAY
     Route: 048
     Dates: start: 20190621

REACTIONS (2)
  - Neoplasm progression [Fatal]
  - Renal surgery [Unknown]

NARRATIVE: CASE EVENT DATE: 20200814
